FAERS Safety Report 25664725 (Version 1)
Quarter: 2025Q3

REPORT INFORMATION
  Report Type: Spontaneous
  Country: US (occurrence: US)
  Receive Date: 20250811
  Receipt Date: 20250811
  Transmission Date: 20251021
  Serious: No
  Sender: GRIFOLS
  Company Number: US-IGSA-BIG0036852

PATIENT
  Sex: Male
  Weight: 84.3 kg

DRUGS (10)
  1. GAMUNEX-C [Suspect]
     Active Substance: HUMAN IMMUNOGLOBULIN G
     Indication: Myasthenia gravis
     Dosage: 60 GRAM, Q.4WK.
     Route: 042
     Dates: start: 20240411
  2. ACETAMINOPHEN [Concomitant]
     Active Substance: ACETAMINOPHEN
     Indication: Premedication
  3. METHYLPREDNISOLONE [Concomitant]
     Active Substance: METHYLPREDNISOLONE
     Indication: Premedication
  4. TRELEGY ELLIPTA [Concomitant]
     Active Substance: FLUTICASONE FUROATE\UMECLIDINIUM BROMIDE\VILANTEROL TRIFENATATE
  5. COREG [Concomitant]
     Active Substance: CARVEDILOL
  6. ASPIRIN [Concomitant]
     Active Substance: ASPIRIN
  7. ZETIA [Concomitant]
     Active Substance: EZETIMIBE
  8. LOSARTAN [Concomitant]
     Active Substance: LOSARTAN
  9. PREDNISONE [Concomitant]
     Active Substance: PREDNISONE
     Dosage: 10 MILLIGRAM, QD
  10. CRESTOR [Concomitant]
     Active Substance: ROSUVASTATIN CALCIUM

REACTIONS (2)
  - Rash [Unknown]
  - Rash erythematous [Unknown]
